FAERS Safety Report 5529824-4 (Version None)
Quarter: 2007Q4

REPORT INFORMATION
  Report Type: 
  Country: None (occurrence: None)
  Receive Date: 20071127
  Receipt Date: 20071113
  Transmission Date: 20080405
  Serious: Yes (Hospitalization)
  Sender: FDA-Public Use
  Company Number: GXKR2007US09734

PATIENT
  Age: 46 Year
  Sex: Female

DRUGS (4)
  1. CLOZAPINE [Suspect]
     Indication: AFFECT LABILITY
     Dosage: 500  MG
  2. RISPERIDONE [Suspect]
     Indication: PSYCHOTIC DISORDER
     Dosage: 1.5 MG, QD, 2 MG, QD, 1.5 MG, QD
  3. CLONIDINE [Concomitant]
  4. BENZTROPEINE (BENZTROPEINE) [Concomitant]

REACTIONS (4)
  - BREATH SOUNDS ABNORMAL [None]
  - DROOLING [None]
  - DRUG INTERACTION [None]
  - DYSPHAGIA [None]
